FAERS Safety Report 4881985-6 (Version None)
Quarter: 2006Q1

REPORT INFORMATION
  Report Type: 
  Country: None (occurrence: None)
  Receive Date: 20060117
  Receipt Date: 20060109
  Transmission Date: 20060701
  Serious: Yes (Other)
  Sender: FDA-Public Use
  Company Number: GB-SANOFI-SYNTHELABO-A01200600181

PATIENT
  Sex: Male

DRUGS (2)
  1. FASTURTEC [Suspect]
     Dosage: UNKNOWN
  2. HYDROXYCARBAMIDE [Concomitant]
     Dosage: 3 DOSES

REACTIONS (1)
  - NEPHRITIS INTERSTITIAL [None]
